FAERS Safety Report 16565830 (Version 2)
Quarter: 2019Q4

REPORT INFORMATION
  Report Type: Spontaneous
  Country: GB (occurrence: GB)
  Receive Date: 20190712
  Receipt Date: 20191015
  Transmission Date: 20200122
  Serious: Yes (Death, Life-Threatening, Hospitalization, Disabling, Other)
  Sender: FDA-Public Use
  Company Number: GB-PFIZER INC-2019297573

PATIENT

DRUGS (1)
  1. BEVACIZUMAB. [Suspect]
     Active Substance: BEVACIZUMAB
     Indication: ADENOCARCINOMA OF THE CERVIX
     Dosage: 1300 MG, UNK
     Route: 042
     Dates: start: 20190410

REACTIONS (4)
  - Dyspnoea [Unknown]
  - Guillain-Barre syndrome [Fatal]
  - Respiratory failure [Unknown]
  - Neuropathy peripheral [Unknown]
